FAERS Safety Report 9842781 (Version 2)
Quarter: 2014Q1

REPORT INFORMATION
  Report Type: Spontaneous
  Country: CH (occurrence: CH)
  Receive Date: 20140124
  Receipt Date: 20140306
  Transmission Date: 20141002
  Serious: Yes (Other)
  Sender: FDA-Public Use
  Company Number: CH-INCYTE CORPORATION-2014IN000130

PATIENT
  Sex: 0

DRUGS (1)
  1. JAKAVI [Suspect]
     Dosage: 5 MG, BID
     Route: 065

REACTIONS (4)
  - Splenomegaly [Unknown]
  - Neutrophil count increased [Unknown]
  - Drug ineffective [Unknown]
  - Myelofibrosis [Unknown]
